FAERS Safety Report 5014516-0 (Version None)
Quarter: 2006Q2

REPORT INFORMATION
  Report Type: 
  Country: None (occurrence: None)
  Receive Date: 20060531
  Receipt Date: 20060314
  Transmission Date: 20061013
  Serious: Yes (Hospitalization)
  Sender: FDA-Public Use
  Company Number: CA-AMGEN-US172351

PATIENT
  Sex: Female
  Weight: 108 kg

DRUGS (2)
  1. ARANESP [Suspect]
     Indication: DIALYSIS
     Route: 058
     Dates: start: 20031216, end: 20060301
  2. EPREX [Suspect]
     Indication: DIALYSIS
     Dates: start: 20021201, end: 20031201

REACTIONS (2)
  - ANAEMIA [None]
  - PANCREATITIS [None]
